FAERS Safety Report 4393501-6 (Version None)
Quarter: 2004Q3

REPORT INFORMATION
  Report Type: 
  Country: None (occurrence: None)
  Receive Date: 20040706
  Receipt Date: 20040706
  Transmission Date: 20050211
  Serious: Yes (Hospitalization)
  Sender: FDA-Public Use
  Company Number: None

PATIENT
  Age: 56 Year
  Sex: Male
  Weight: 66.8 kg

DRUGS (5)
  1. CEFEPIME [Suspect]
     Indication: PNEUMONIA
     Dosage: 1 G IV Q 12 HRS
     Route: 042
     Dates: start: 20040118, end: 20040122
  2. VANCOMYCIN [Suspect]
     Indication: PNEUMONIA
     Dosage: 1 G IV Q 12 HRS
     Route: 042
     Dates: start: 20040114, end: 20040122
  3. VORICONAZOLE [Concomitant]
  4. ARITHROMYCIN [Concomitant]
  5. CEFTIZOXONE [Concomitant]

REACTIONS (3)
  - ENTEROBACTER INFECTION [None]
  - PYREXIA [None]
  - SPUTUM CULTURE POSITIVE [None]
